FAERS Safety Report 14901825 (Version 1)
Quarter: 2018Q2

REPORT INFORMATION
  Report Type: Report from Study
  Country: GB (occurrence: GB)
  Receive Date: 20180516
  Receipt Date: 20180516
  Transmission Date: 20180711
  Serious: Yes (Hospitalization, Other)
  Sender: FDA-Public Use
  Company Number: GB-CELLTRION INC.-2018GB019699

PATIENT

DRUGS (2)
  1. REMSIMA [Suspect]
     Active Substance: INFLIXIMAB
     Indication: RHEUMATOID ARTHRITIS
     Dosage: UNK
     Route: 042
     Dates: start: 20160510, end: 20160510
  2. REMSIMA [Suspect]
     Active Substance: INFLIXIMAB
     Dosage: UNK
     Route: 042
     Dates: start: 20180124, end: 20180124

REACTIONS (5)
  - International normalised ratio increased [Recovered/Resolved with Sequelae]
  - Sepsis [Recovered/Resolved with Sequelae]
  - Cholangiocarcinoma [Recovered/Resolved with Sequelae]
  - Erythema multiforme [Recovered/Resolved with Sequelae]
  - Neutrophilia [Recovered/Resolved with Sequelae]

NARRATIVE: CASE EVENT DATE: 20180122
